FAERS Safety Report 19494534 (Version 1)
Quarter: 2021Q3

REPORT INFORMATION
  Report Type: Spontaneous
  Country: DE (occurrence: DE)
  Receive Date: 20210705
  Receipt Date: 20210705
  Transmission Date: 20211014
  Serious: Yes (Hospitalization)
  Sender: FDA-Public Use
  Company Number: NVSC2021DE144798

PATIENT
  Age: 85 Year
  Sex: Male
  Weight: 59 kg

DRUGS (3)
  1. FUROSEMID [Suspect]
     Active Substance: FUROSEMIDE
     Dosage: 40 MG ( 3 MAL PRO WOCHE EINE HALBE TABLETTE)
     Route: 048
  2. ALLOPURINOL. [Concomitant]
     Active Substance: ALLOPURINOL
     Indication: PRODUCT USED FOR UNKNOWN INDICATION
     Dosage: 150 MG, QD (150 MG, 1?0?0?0, TABLETTEN)
     Route: 048
  3. BUDESONID [Concomitant]
     Active Substance: BUDESONIDE
     Indication: PRODUCT USED FOR UNKNOWN INDICATION
     Dosage: UNK(BEI BEDARF, DOSIERAEROSOL)
     Route: 055

REACTIONS (2)
  - Diarrhoea [Unknown]
  - Asthenia [Unknown]
